FAERS Safety Report 14756223 (Version 2)
Quarter: 2018Q2

REPORT INFORMATION
  Report Type: Report from Study
  Country: US (occurrence: US)
  Receive Date: 20180413
  Receipt Date: 20180425
  Transmission Date: 20180711
  Serious: Yes (Other)
  Sender: FDA-Public Use
  Company Number: US-AMGEN-USASL2018048634

PATIENT
  Age: 76 Year
  Sex: Male
  Weight: 72.11 kg

DRUGS (1)
  1. REPATHA [Suspect]
     Active Substance: EVOLOCUMAB
     Indication: HYPERCHOLESTEROLAEMIA
     Dosage: 140 MG, Q2WK
     Route: 058
     Dates: start: 20160512, end: 20170829

REACTIONS (4)
  - Feeling abnormal [Unknown]
  - Back pain [Unknown]
  - Asthenia [Unknown]
  - Nocturnal dyspnoea [Unknown]

NARRATIVE: CASE EVENT DATE: 2017
